FAERS Safety Report 4887898-8 (Version None)
Quarter: 2006Q1

REPORT INFORMATION
  Report Type: 
  Country: None (occurrence: None)
  Receive Date: 20060123
  Receipt Date: 20051001
  Transmission Date: 20060701
  Serious: Yes (Hospitalization, Other)
  Sender: FDA-Public Use
  Company Number: PR-MERCK-0510USA01705

PATIENT
  Age: 48 Year
  Sex: Female

DRUGS (6)
  1. VIOXX [Suspect]
     Route: 048
     Dates: start: 20000101
  2. NEURONTIN [Concomitant]
     Route: 065
  3. TICLID [Concomitant]
     Route: 065
  4. SYNTHROID [Concomitant]
     Route: 065
  5. SLO-BID [Concomitant]
     Route: 065
  6. GLUCOTROL XL [Concomitant]
     Route: 065

REACTIONS (9)
  - ANGINA PECTORIS [None]
  - ARRHYTHMIA [None]
  - CARDIOVASCULAR DISORDER [None]
  - CEREBROVASCULAR ACCIDENT [None]
  - MYOCARDIAL INFARCTION [None]
  - ORGAN FAILURE [None]
  - PULMONARY EMBOLISM [None]
  - THROMBOSIS [None]
  - TRANSIENT ISCHAEMIC ATTACK [None]
